FAERS Safety Report 8952717 (Version 1)
Quarter: 2012Q4

REPORT INFORMATION
  Report Type: Report from Study
  Country: BR (occurrence: BR)
  Receive Date: 20121205
  Receipt Date: 20121205
  Transmission Date: 20130627
  Serious: Yes (Hospitalization)
  Sender: FDA-Public Use
  Company Number: BR-ABBOTT-12P-020-1014750-00

PATIENT
  Sex: Female
  Weight: 50 kg

DRUGS (11)
  1. HUMIRA [Suspect]
     Indication: RHEUMATOID ARTHRITIS
     Route: 058
     Dates: start: 20120801
  2. METHOTREXATE [Concomitant]
     Indication: RHEUMATOID ARTHRITIS
     Route: 048
     Dates: start: 2011
  3. AAS [Concomitant]
     Indication: CARDIOVASCULAR DISORDER
     Dosage: After lunch
     Route: 048
     Dates: start: 201206
  4. PREDNISONE [Concomitant]
     Indication: PAIN
     Dosage: In the morning
     Route: 048
  5. PREDNISONE [Concomitant]
     Indication: RHEUMATOID ARTHRITIS
  6. MONOCORDIL [Concomitant]
     Indication: CARDIAC DISORDER
     Route: 048
     Dates: start: 201206
  7. MONOCORDIL [Concomitant]
     Indication: ANGINA PECTORIS
  8. FLUOXETIN [Concomitant]
     Indication: ANXIETY
     Dosage: In the morning
     Route: 048
     Dates: start: 201209
  9. OMEPRAZOLE [Concomitant]
     Indication: GASTRIC DISORDER
     Route: 048
     Dates: start: 2002
  10. CALCIUM CARBONATE [Concomitant]
     Indication: BONE DISORDER
     Route: 048
     Dates: start: 2011
  11. VITAMIN D [Concomitant]
     Indication: BONE DISORDER
     Dosage: 400 IU daily
     Route: 048
     Dates: start: 2011

REACTIONS (3)
  - Hypotension [Not Recovered/Not Resolved]
  - Tachycardia [Not Recovered/Not Resolved]
  - Urinary tract infection [Not Recovered/Not Resolved]
